FAERS Safety Report 12840072 (Version 2)
Quarter: 2016Q4

REPORT INFORMATION
  Report Type: Spontaneous
  Country: US (occurrence: US)
  Receive Date: 20161012
  Receipt Date: 20161017
  Transmission Date: 20170207
  Serious: No
  Sender: FDA-Public Use
  Company Number: US-TEVA-685418USA

PATIENT
  Sex: Female
  Weight: 58.11 kg

DRUGS (1)
  1. AMIKACIN [Suspect]
     Active Substance: AMIKACIN
     Indication: MYCOBACTERIUM AVIUM COMPLEX INFECTION
     Dates: start: 20160224, end: 20160224

REACTIONS (2)
  - Asthenia [Unknown]
  - Fatigue [Unknown]
